FAERS Safety Report 5419226-3 (Version None)
Quarter: 2007Q3

REPORT INFORMATION
  Report Type: 
  Country: None (occurrence: None)
  Receive Date: 20070820
  Receipt Date: 20070808
  Transmission Date: 20080115
  Serious: Yes (Hospitalization)
  Sender: FDA-Public Use
  Company Number: AT-JNJFOC-20070801458

PATIENT
  Age: 50 Year
  Sex: Female
  Weight: 68 kg

DRUGS (5)
  1. REMICADE [Suspect]
     Indication: CROHN'S DISEASE
     Dosage: 1ST INFUSION
     Route: 042
  2. AZATHIOPRINE [Concomitant]
     Indication: CROHN'S DISEASE
     Dosage: FREQUENCY 1/2-0-1 FOR MONTHS OR YEARS
     Route: 048
  3. CALCIUM WITH VITAMIN D [Concomitant]
     Dosage: FREQUENCY 2-0-0 FOR MONTHS OR YEARS
     Route: 048
  4. MUTAFLOR [Concomitant]
     Dosage: FREQUENCY 1-0-1 FOR MONTHS OR YEARS
     Route: 048
  5. FLUOXETINE [Concomitant]
     Dosage: FREQUENCY 1-0-0 FOR MONTHS OR YEARS
     Route: 048

REACTIONS (1)
  - RASH MACULO-PAPULAR [None]
